FAERS Safety Report 23283803 (Version 2)
Quarter: 2024Q1

REPORT INFORMATION
  Report Type: Spontaneous
  Country: FR (occurrence: FR)
  Receive Date: 20231211
  Receipt Date: 20240102
  Transmission Date: 20240410
  Serious: Yes (Other)
  Sender: FDA-Public Use
  Company Number: FR-ACRAF SpA-2023-032706

PATIENT

DRUGS (5)
  1. XCOPRI [Suspect]
     Active Substance: CENOBAMATE
     Indication: Epilepsy
     Dosage: 100 MILLIGRAM, QD
     Route: 048
     Dates: start: 20230224
  2. XCOPRI [Suspect]
     Active Substance: CENOBAMATE
     Dosage: 50 MILLIGRAM, QD
     Route: 048
  3. DEPAKINE                           /00228501/ [Concomitant]
     Indication: Product used for unknown indication
     Dosage: 1 TABLET IN THE MORNING, 2 TABLETS IN THE EVENING
     Route: 048
  4. VIMPAT [Concomitant]
     Active Substance: LACOSAMIDE
     Indication: Product used for unknown indication
     Dosage: 200 MG IN THE MORNING, 200 MG IN THE EVENING
     Route: 048
  5. CLOBAZAM [Concomitant]
     Active Substance: CLOBAZAM
     Indication: Product used for unknown indication
     Dosage: 1 TABLET IN THE MORNING, AND 1 TABLET IN THE EVENING
     Route: 048

REACTIONS (3)
  - Erectile dysfunction [Recovering/Resolving]
  - Off label use [Unknown]
  - Underdose [Unknown]

NARRATIVE: CASE EVENT DATE: 20230401
